FAERS Safety Report 6022132-7 (Version None)
Quarter: 2008Q4

REPORT INFORMATION
  Report Type: 
  Country: None (occurrence: None)
  Receive Date: 20081223
  Receipt Date: 20081216
  Transmission Date: 20090506
  Serious: Yes (Hospitalization)
  Sender: FDA-Public Use
  Company Number: IPS_01277_2008

PATIENT
  Sex: Male
  Weight: 72.5755 kg

DRUGS (4)
  1. APOKYN [Suspect]
     Indication: PARKINSON'S DISEASE
     Dosage: 0.3 ML, [IRREGULAR FREQUENCY], SUBCUTANEOUS
     Route: 058
     Dates: start: 20080529, end: 20080101
  2. SINEMET [Concomitant]
  3. SINEMET CR [Concomitant]
  4. NEURONTIN [Concomitant]

REACTIONS (3)
  - BRACHIAL PLEXUS INJURY [None]
  - DRUG INEFFECTIVE [None]
  - FALL [None]
